FAERS Safety Report 9402975 (Version 1)
Quarter: 2013Q3

REPORT INFORMATION
  Report Type: Report from Study
  Country: AU (occurrence: AU)
  Receive Date: 20130716
  Receipt Date: 20130716
  Transmission Date: 20140515
  Serious: Yes (Hospitalization)
  Sender: FDA-Public Use
  Company Number: AU-ELI_LILLY_AND_COMPANY-AU200601004094

PATIENT
  Age: 2 Year
  Sex: Male

DRUGS (3)
  1. SOMATROPIN [Suspect]
     Indication: HYPOPITUITARISM
     Dosage: 0.37 MG, OTHER
     Route: 058
     Dates: start: 20030515
  2. HYDROCORTISONE [Concomitant]
     Indication: HYPOPITUITARISM
     Dosage: 2 MG, 3/D
     Route: 048
     Dates: start: 20030512
  3. THYROXINE [Concomitant]
     Indication: HYPOPITUITARISM
     Dosage: 50 UG, OTHER
     Route: 048
     Dates: start: 20030513

REACTIONS (4)
  - Febrile convulsion [Recovered/Resolved]
  - Influenza [Recovered/Resolved]
  - Gastroenteritis [Recovered/Resolved]
  - Hydrocele [Recovering/Resolving]
